FAERS Safety Report 8299327-5 (Version None)
Quarter: 2012Q2

REPORT INFORMATION
  Report Type: 
  Country: None (occurrence: None)
  Receive Date: 20120419
  Receipt Date: 20120413
  Transmission Date: 20120825
  Serious: Yes (Other)
  Sender: FDA-Public Use
  Company Number: KR-ABBOTT-12P-090-0925783-00

PATIENT
  Age: 43 Year
  Sex: Male
  Weight: 61 kg

DRUGS (5)
  1. SEPTRA [Concomitant]
     Indication: PROPHYLAXIS
     Dosage: 2 TABS DAILY DOSE
     Route: 048
     Dates: start: 20100706
  2. ABC [Concomitant]
     Indication: ANTIRETROVIRAL THERAPY
     Dosage: 600MG DAILY DOSE
     Route: 048
     Dates: start: 20100709
  3. KALETRA [Suspect]
     Indication: HIV INFECTION
     Route: 048
     Dates: start: 20100709
  4. CLARITHROMYCIN [Concomitant]
     Indication: PROPHYLAXIS
     Dosage: 1000MG DAILY DOSE
     Route: 048
     Dates: start: 20100701, end: 20110601
  5. LAMIVUDINE (EPIVIR HBV) [Concomitant]
     Indication: ANTIRETROVIRAL THERAPY
     Dosage: 300MG DAILY DOSE
     Route: 048
     Dates: start: 20100709

REACTIONS (2)
  - HYPERTRIGLYCERIDAEMIA [None]
  - HEPATIC CIRRHOSIS [None]
